FAERS Safety Report 8918958 (Version 3)
Quarter: 2013Q3

REPORT INFORMATION
  Report Type: Spontaneous
  Country: US (occurrence: US)
  Receive Date: 20121121
  Receipt Date: 20130815
  Transmission Date: 20140515
  Serious: Yes (Hospitalization, Other)
  Sender: FDA-Public Use
  Company Number: US-ASTRAZENECA-2012SE23038

PATIENT
  Age: 53 Year
  Sex: Female
  Weight: 56.7 kg

DRUGS (5)
  1. NEXIUM [Suspect]
     Indication: GASTROOESOPHAGEAL REFLUX DISEASE
     Route: 048
     Dates: start: 199703
  2. NEXIUM [Suspect]
     Indication: GASTROOESOPHAGEAL REFLUX DISEASE
     Dosage: 40MG, SOMETIMES TWICE A DAY
     Route: 048
     Dates: start: 199703
  3. LISINOPRIL [Suspect]
     Route: 048
     Dates: start: 199703
  4. MULTIVITAMIN [Concomitant]
     Dosage: DAILY
  5. CALCIUM [Concomitant]

REACTIONS (15)
  - Fall [Recovered/Resolved]
  - Hand fracture [Recovered/Resolved]
  - Osteoporosis [Not Recovered/Not Resolved]
  - Rib fracture [Not Recovered/Not Resolved]
  - Spinal fracture [Recovered/Resolved]
  - Sternal fracture [Recovered/Resolved]
  - Wrist fracture [Recovered/Resolved]
  - Osteoporotic fracture [Unknown]
  - Bone loss [Unknown]
  - Weight decreased [Unknown]
  - Tooth discolouration [Not Recovered/Not Resolved]
  - Aphagia [Recovered/Resolved]
  - Amnesia [Unknown]
  - Off label use [Unknown]
  - Drug dose omission [Recovered/Resolved]
